FAERS Safety Report 9032304 (Version 2)
Quarter: 2013Q1

REPORT INFORMATION
  Report Type: Spontaneous
  Country: US (occurrence: US)
  Receive Date: 20130122
  Receipt Date: 20130304
  Transmission Date: 20140127
  Serious: Yes (Hospitalization, Other)
  Sender: FDA-Public Use
  Company Number: US-ELI_LILLY_AND_COMPANY-US201301003733

PATIENT
  Age: 63 Year
  Sex: Male

DRUGS (9)
  1. HUMALOG LISPRO [Suspect]
     Indication: TYPE 1 DIABETES MELLITUS
     Dosage: UNK, PRN
     Dates: start: 2008
  2. EFFIENT [Suspect]
     Dosage: UNK
  3. LANTUS [Concomitant]
     Indication: TYPE 1 DIABETES MELLITUS
     Dosage: UNK, BID
  4. PLAVIX [Concomitant]
  5. ALTACE [Concomitant]
     Dosage: 10 MG, UNK
  6. ASPIRIN                                 /USA/ [Concomitant]
     Dosage: 325 MG, UNK
  7. CARVEDILOL [Concomitant]
     Dosage: 12.5 MG, BID
  8. SPIROLACTON [Concomitant]
     Dosage: 25 MG, UNK
  9. ZOCOR [Concomitant]
     Dosage: 40 MG, UNK

REACTIONS (6)
  - Thrombosis [Unknown]
  - Device occlusion [Unknown]
  - Coronary artery disease [Unknown]
  - Hypertension [Unknown]
  - Blood cholesterol increased [Unknown]
  - Blood glucose increased [Recovering/Resolving]
